FAERS Safety Report 9790090 (Version 1)
Quarter: 2013Q4

REPORT INFORMATION
  Report Type: Spontaneous
  Country: US (occurrence: None)
  Receive Date: 20131230
  Receipt Date: 20131230
  Transmission Date: 20140711
  Serious: Yes (Other)
  Sender: FDA-Public Use
  Company Number: None

PATIENT
  Age: 73 Year
  Sex: Female

DRUGS (1)
  1. LYRICA 75MG PFIZER [Suspect]
     Indication: FIBROMYALGIA
     Route: 048
     Dates: start: 20130815

REACTIONS (1)
  - Myasthenia gravis [None]
